FAERS Safety Report 9278731 (Version 1)
Quarter: 2013Q2

REPORT INFORMATION
  Report Type: Spontaneous
  Country: US (occurrence: None)
  Receive Date: 20130506
  Receipt Date: 20130506
  Transmission Date: 20140414
  Serious: Yes (Hospitalization)
  Sender: FDA-Public Use
  Company Number: None

PATIENT
  Sex: Female

DRUGS (1)
  1. LISINOPRIL [Suspect]
     Route: 048

REACTIONS (4)
  - Meningitis aseptic [None]
  - Local swelling [None]
  - Swollen tongue [None]
  - Hypoxia [None]
